FAERS Safety Report 5730644-6 (Version None)
Quarter: 2008Q2

REPORT INFORMATION
  Report Type: 
  Country: None (occurrence: None)
  Receive Date: 20080507
  Receipt Date: 20080219
  Transmission Date: 20081010
  Serious: Yes (Other)
  Sender: FDA-Public Use
  Company Number: US-ASTRAZENECA-2008UW03437

PATIENT
  Age: 79 Year
  Sex: Female

DRUGS (3)
  1. ARIMIDEX [Suspect]
     Indication: BREAST CANCER
     Route: 048
     Dates: start: 20020401, end: 20040101
  2. FEMARA [Suspect]
     Dates: start: 20040101, end: 20080218
  3. NEXIUM [Concomitant]

REACTIONS (3)
  - ENDOMETRIAL NEOPLASM [None]
  - HAEMORRHAGE URINARY TRACT [None]
  - UTERINE CANCER [None]
